FAERS Safety Report 9857146 (Version 1)
Quarter: 2014Q1

REPORT INFORMATION
  Report Type: Spontaneous
  Country: BR (occurrence: None)
  Receive Date: 20140128
  Receipt Date: 20140128
  Transmission Date: 20141002
  Serious: No
  Sender: FDA-Public Use
  Company Number: B0962755A

PATIENT
  Sex: 0

DRUGS (4)
  1. ETOPOSIDE [Suspect]
     Indication: LYMPHOMA
  2. ALKERAN [Suspect]
     Indication: LYMPHOMA
  3. LOMUSTINE [Suspect]
     Indication: LYMPHOMA
  4. CYTARABINE [Suspect]
     Indication: LYMPHOMA

REACTIONS (2)
  - Sepsis [None]
  - Neurotoxicity [None]
